FAERS Safety Report 14566775 (Version 3)
Quarter: 2021Q2

REPORT INFORMATION
  Report Type: Spontaneous
  Country: JP (occurrence: JP)
  Receive Date: 20180223
  Receipt Date: 20210629
  Transmission Date: 20210716
  Serious: Yes (Hospitalization, Other)
  Sender: FDA-Public Use
  Company Number: JP-ASTELLAS-2018JP002970AA

PATIENT
  Age: 35 Year
  Sex: Female
  Weight: 43 kg

DRUGS (20)
  1. METHYLDOPA HYDROCHLORIDE [Concomitant]
     Active Substance: METHYLDOPATE HYDROCHLORIDE
     Route: 048
  2. INSULIN [Concomitant]
     Active Substance: INSULIN NOS
     Indication: DIABETES MELLITUS MANAGEMENT
     Dosage: ABOUT 20 UNITS, ONCE DAILY
     Route: 058
  3. METHYLDOPA HYDROCHLORIDE [Concomitant]
     Active Substance: METHYLDOPATE HYDROCHLORIDE
     Route: 048
  4. METHYLDOPA HYDROCHLORIDE [Concomitant]
     Active Substance: METHYLDOPATE HYDROCHLORIDE
     Route: 048
  5. RITODRINE HYDROCHLORIDE [Concomitant]
     Active Substance: RITODRINE HYDROCHLORIDE
     Indication: PREMATURE LABOUR
     Dosage: 50 ?G/MIN, CONTINUOUS
     Route: 041
  6. CLOMIFENE CITRATE [Concomitant]
     Active Substance: CLOMIPHENE
     Indication: OVULATION INDUCTION
     Dosage: UNK UNK, UNKNOWN FREQ.
     Route: 065
  7. SULFAMETHOXAZOLE AND TRIMETHOPRIM [Suspect]
     Active Substance: SULFAMETHOXAZOLE\TRIMETHOPRIM
     Indication: ANTIFUNGAL PROPHYLAXIS
     Dosage: UNK UNK, UNKNOWN FREQ.
     Route: 048
  8. VALSARTAN. [Suspect]
     Active Substance: VALSARTAN
     Indication: HYPERTENSION
     Dosage: UNK UNK, UNKNOWN FREQ.
     Route: 048
  9. AZATHIOPRINE. [Concomitant]
     Active Substance: AZATHIOPRINE
     Indication: IMMUNOSUPPRESSANT DRUG THERAPY
     Route: 065
  10. GRACEPTOR [Suspect]
     Active Substance: TACROLIMUS
     Dosage: 3.0 MG/DAY, UNKNOWN FREQ.
     Route: 048
  11. MYCOPHENOLATE MOFETIL. [Suspect]
     Active Substance: MYCOPHENOLATE MOFETIL
     Indication: IMMUNOSUPPRESSANT DRUG THERAPY
     Route: 048
  12. GRACEPTOR [Suspect]
     Active Substance: TACROLIMUS
     Indication: IMMUNOSUPPRESSANT DRUG THERAPY
     Dosage: 2.4 MG/DAY, UNKNOWN FREQ.
     Route: 048
  13. MYCOPHENOLATE MOFETIL. [Suspect]
     Active Substance: MYCOPHENOLATE MOFETIL
     Route: 048
  14. AMLODIPINE [Suspect]
     Active Substance: AMLODIPINE BESYLATE
     Route: 048
  15. INSULIN [Concomitant]
     Active Substance: INSULIN NOS
     Dosage: UNK UNK, UNKNOWN FREQ.
     Route: 058
  16. METHYLDOPA HYDROCHLORIDE [Concomitant]
     Active Substance: METHYLDOPATE HYDROCHLORIDE
     Indication: HYPERTENSION
     Route: 048
  17. PREDNISOLONE. [Suspect]
     Active Substance: PREDNISOLONE
     Indication: IMMUNOSUPPRESSANT DRUG THERAPY
     Route: 065
  18. AMLODIPINE [Suspect]
     Active Substance: AMLODIPINE BESYLATE
     Indication: BLOOD PRESSURE INADEQUATELY CONTROLLED
     Route: 048
  19. VALSARTAN. [Suspect]
     Active Substance: VALSARTAN
     Indication: NEPHROPROTECTIVE THERAPY
     Dosage: UNK UNK, UNKNOWN FREQ.
     Route: 048
  20. INSULIN [Concomitant]
     Active Substance: INSULIN NOS
     Dosage: UNK UNK, UNKNOWN FREQ.
     Route: 058

REACTIONS (7)
  - Foetal growth restriction [Unknown]
  - Renal impairment [Recovered/Resolved]
  - Gestational hypertension [Recovered/Resolved]
  - Hypertensive nephropathy [Recovered/Resolved]
  - Premature labour [Unknown]
  - Blood creatinine increased [Unknown]
  - Maternal exposure during pregnancy [Unknown]
